FAERS Safety Report 8593527-2 (Version None)
Quarter: 2012Q3

REPORT INFORMATION
  Report Type: 
  Country: None (occurrence: None)
  Receive Date: 20120814
  Receipt Date: 20120808
  Transmission Date: 20120928
  Serious: Yes (Other)
  Sender: FDA-Public Use
  Company Number: JP-BAYER-2012-080950

PATIENT
  Age: 67 Year
  Sex: Male

DRUGS (3)
  1. ASPIRIN [Suspect]
     Dosage: UNK
     Route: 048
     Dates: start: 20111201
  2. RABEPRAZOLE SODIUM [Concomitant]
     Dosage: UNK
     Route: 048
     Dates: start: 20111201
  3. CLOPIDOGREL BISULFATE [Concomitant]
     Dosage: UNK
     Dates: start: 20111201

REACTIONS (1)
  - GASTROINTESTINAL HAEMORRHAGE [None]
